FAERS Safety Report 15223218 (Version 1)
Quarter: 2018Q3

REPORT INFORMATION
  Report Type: Spontaneous
  Country: FR (occurrence: FR)
  Receive Date: 20180731
  Receipt Date: 20180731
  Transmission Date: 20181010
  Serious: Yes (Hospitalization)
  Sender: FDA-Public Use
  Company Number: FR-PFIZER INC-2018306828

PATIENT
  Age: 72 Year
  Sex: Male

DRUGS (2)
  1. PRETERAX /06377001/ [Interacting]
     Active Substance: INDAPAMIDE\PERINDOPRIL
     Indication: HYPERTENSION
     Dosage: 2.5 MG, UNK
     Route: 048
     Dates: start: 2004, end: 20180602
  2. ESTRAMUSTINE SODIUM PHOSPHATE [Suspect]
     Active Substance: ESTRAMUSTINE PHOSPHATE SODIUM
     Indication: NEOPLASM MALIGNANT
     Dosage: 140 MG, UNK
     Dates: start: 2017, end: 20180603

REACTIONS (3)
  - Labelled drug-drug interaction medication error [Recovered/Resolved]
  - Drug interaction [Recovered/Resolved]
  - Angioedema [Recovered/Resolved]

NARRATIVE: CASE EVENT DATE: 2017
